FAERS Safety Report 20717496 (Version 1)
Quarter: 2022Q2

REPORT INFORMATION
  Report Type: Spontaneous
  Country: PT (occurrence: PT)
  Receive Date: 20220417
  Receipt Date: 20220417
  Transmission Date: 20220721
  Serious: Yes (Other)
  Sender: FDA-Public Use
  Company Number: None

PATIENT
  Age: 57 Year
  Sex: Male
  Weight: 99 kg

DRUGS (7)
  1. LEVOFLOXACIN [Suspect]
     Active Substance: LEVOFLOXACIN
     Indication: Pulmonary tuberculosis
     Dosage: UNIT DOSE : 750 MG, FREQUENCY TIME : 1 DAYS
     Route: 048
     Dates: start: 20200820
  2. CYCLOSERINE [Suspect]
     Active Substance: CYCLOSERINE
     Indication: Pulmonary tuberculosis
     Dosage: UNIT DOSE : 750 MG, FREQUENCY TIME : 1 DAYS
     Route: 048
     Dates: start: 20200820
  3. LAMPRENE [Suspect]
     Active Substance: CLOFAZIMINE
     Indication: Pulmonary tuberculosis
     Dosage: UNIT DOSE : 100 MG,  FREQUENCY TIME : 1 DAYS
     Route: 048
     Dates: start: 20200820
  4. ISOTRETINOIN [Suspect]
     Active Substance: ISOTRETINOIN
     Indication: Acne
     Dosage: UNIT DOSE : 25 MG, FREQUENCY TIME : 1 DAYS
     Route: 048
     Dates: start: 20210501
  5. TRAMADOL [Concomitant]
     Active Substance: TRAMADOL
  6. TAMSULOSIN [Concomitant]
     Active Substance: TAMSULOSIN
  7. PANTOPRAZOLE SODIUM [Concomitant]
     Active Substance: PANTOPRAZOLE SODIUM

REACTIONS (2)
  - Dermatophytosis [Recovered/Resolved]
  - Lipomatosis [Unknown]

NARRATIVE: CASE EVENT DATE: 20211001
